FAERS Safety Report 4959556-2 (Version None)
Quarter: 2006Q1

REPORT INFORMATION
  Report Type: 
  Country: None (occurrence: None)
  Receive Date: 20060331
  Receipt Date: 20060321
  Transmission Date: 20060701
  Serious: Yes (Other)
  Sender: FDA-Public Use
  Company Number: NZ-GLAXOSMITHKLINE-B0418464A

PATIENT
  Sex: Male

DRUGS (1)
  1. MALARONE [Suspect]

REACTIONS (2)
  - AGGRESSION [None]
  - ANGER [None]
